FAERS Safety Report 17589087 (Version 1)
Quarter: 2020Q1

REPORT INFORMATION
  Report Type: Spontaneous
  Country: FR (occurrence: FR)
  Receive Date: 20200327
  Receipt Date: 20200327
  Transmission Date: 20200409
  Serious: Yes (Hospitalization, Congenital Anomaly)
  Sender: FDA-Public Use
  Company Number: FR-TEVA-2020-FR-1210172

PATIENT
  Age: 43 Year
  Weight: 66.3 kg

DRUGS (1)
  1. DOCETAXEL. [Suspect]
     Active Substance: DOCETAXEL
     Indication: NEOPLASM MALIGNANT
     Dosage: 132 MG
     Route: 042
     Dates: start: 20200218, end: 20200223

REACTIONS (2)
  - Aplasia [Recovering/Resolving]
  - Enterocolitis [Recovering/Resolving]

NARRATIVE: CASE EVENT DATE: 20200228
